FAERS Safety Report 8152882-8 (Version None)
Quarter: 2012Q1

REPORT INFORMATION
  Report Type: 
  Country: None (occurrence: None)
  Receive Date: 20120216
  Receipt Date: 20120216
  Transmission Date: 20120608
  Serious: Yes (Life-Threatening, Other)
  Sender: FDA-Public Use
  Company Number: None

PATIENT
  Age: 51 Year
  Sex: Female
  Weight: 63.5036 kg

DRUGS (2)
  1. ICEBREAKERS MINTS AND GUM [Suspect]
     Indication: NASOPHARYNGITIS
  2. SUDAFED 12 HOUR [Suspect]
     Indication: DRUG THERAPY
     Dates: start: 20080101, end: 20111116

REACTIONS (12)
  - MUSCLE SPASMS [None]
  - MUSCULOSKELETAL DISCOMFORT [None]
  - MOUTH ULCERATION [None]
  - SCIATICA [None]
  - BACK DISORDER [None]
  - HEADACHE [None]
  - DIZZINESS [None]
  - FATIGUE [None]
  - TREMOR [None]
  - NEUROPATHY PERIPHERAL [None]
  - HAEMATOCHEZIA [None]
  - ARTHRALGIA [None]
